FAERS Safety Report 4907977-6 (Version None)
Quarter: 2006Q1

REPORT INFORMATION
  Report Type: 
  Country: None (occurrence: None)
  Receive Date: 20060208
  Receipt Date: 20060123
  Transmission Date: 20060701
  Serious: Yes (Congenital Anomaly)
  Sender: FDA-Public Use
  Company Number: 2005BI021254

PATIENT
  Sex: Male

DRUGS (1)
  1. AVONEX LIQUID (INTERFERON BETA) [Suspect]
     Indication: MULTIPLE SCLEROSIS
     Dosage: 30 UG;QW;TRPL
     Route: 064
     Dates: end: 20041104

REACTIONS (3)
  - CIRCUMCISION [None]
  - DRUG EXPOSURE DURING PREGNANCY [None]
  - KIDNEY DUPLEX [None]
